FAERS Safety Report 6516534-X (Version None)
Quarter: 2009Q4

REPORT INFORMATION
  Report Type: 
  Country: None (occurrence: None)
  Receive Date: 20091223
  Receipt Date: 20091215
  Transmission Date: 20100525
  Serious: Yes (Other)
  Sender: FDA-Public Use
  Company Number: US-BAYER-200924575NA

PATIENT
  Age: 63 Year
  Sex: Female
  Weight: 64 kg

DRUGS (23)
  1. MAGNEVIST [Suspect]
     Indication: NUCLEAR MAGNETIC RESONANCE IMAGING
     Route: 042
     Dates: start: 19980330, end: 19980330
  2. MAGNEVIST [Suspect]
     Dates: start: 20050124, end: 20050124
  3. OMNISCAN [Suspect]
  4. OPTIMARK [Suspect]
  5. MULTIHANCE [Suspect]
  6. PROHANCE [Suspect]
  7. RENAGEL [Concomitant]
  8. PLAVIX [Concomitant]
  9. METOPROLOL TARTRATE [Concomitant]
  10. PRAVACHOL [Concomitant]
  11. PHOSLO [Concomitant]
  12. NORVASC [Concomitant]
  13. ALBUTEROL [Concomitant]
  14. AMIODARONE [Concomitant]
  15. INDOMETHACIN [Concomitant]
  16. TOPROL-XL [Concomitant]
  17. PRANDIN [Concomitant]
  18. BACTRIM [Concomitant]
  19. NIZORAL [Concomitant]
  20. OLUX FOAM [Concomitant]
  21. BENADRYL [Concomitant]
  22. SULAMYD OPHTHALMIC DROPS [Concomitant]
     Indication: CONJUNCTIVITIS
  23. VANCOMYCIN [Concomitant]
     Dosage: 1 GRAM IVPB ONE TIME ONLY DURING DIALYSIS

REACTIONS (25)
  - ASTHENIA [None]
  - CONSTIPATION [None]
  - DRY SKIN [None]
  - DYSPHAGIA [None]
  - FATIGUE [None]
  - FIBROSIS [None]
  - JOINT STIFFNESS [None]
  - JOINT SWELLING [None]
  - MUSCLE TIGHTNESS [None]
  - MUSCULOSKELETAL STIFFNESS [None]
  - MYALGIA [None]
  - NEPHROGENIC SYSTEMIC FIBROSIS [None]
  - NIGHT SWEATS [None]
  - NODULE ON EXTREMITY [None]
  - OEDEMA [None]
  - PAIN [None]
  - PAIN IN EXTREMITY [None]
  - PRURITUS [None]
  - RASH PAPULAR [None]
  - SKIN HYPERPIGMENTATION [None]
  - SKIN HYPERTROPHY [None]
  - SKIN PLAQUE [None]
  - SKIN TIGHTNESS [None]
  - SKIN ULCER [None]
  - WEIGHT DECREASED [None]
